FAERS Safety Report 5204163-X (Version None)
Quarter: 2007Q1

REPORT INFORMATION
  Report Type: 
  Country: None (occurrence: None)
  Receive Date: 20070110
  Receipt Date: 20051220
  Transmission Date: 20070707
  Serious: No
  Sender: FDA-Public Use
  Company Number: US-BRISTOL-MYERS SQUIBB COMPANY-13225065

PATIENT
  Age: 16 Year
  Sex: Male

DRUGS (4)
  1. ABILIFY [Suspect]
     Indication: BIPOLAR I DISORDER
     Dosage: ABILIFY: (THERAPY DATES UNSPECIFIED) INITIATED ON 5MG QD X14DAYS; 10MG X7DAYS; 15MG X3 DAYS.
     Dates: end: 20051201
  2. PROZAC [Concomitant]
     Dates: end: 20051201
  3. DEPAKOTE [Concomitant]
  4. TOPAMAX [Concomitant]

REACTIONS (1)
  - AKINESIA [None]
